FAERS Safety Report 25887015 (Version 1)
Quarter: 2025Q4

REPORT INFORMATION
  Report Type: Spontaneous
  Country: TR (occurrence: TR)
  Receive Date: 20251006
  Receipt Date: 20251006
  Transmission Date: 20260117
  Serious: Yes (Other)
  Sender: NOVARTIS
  Company Number: TR-002147023-NVSC2025TR150320

PATIENT
  Age: 56 Year
  Sex: Male

DRUGS (1)
  1. TEGRETOL XR [Suspect]
     Active Substance: CARBAMAZEPINE
     Indication: Trigeminal neuralgia
     Dosage: UNK (ABOUT 20 YEARS AGO)
     Route: 065

REACTIONS (9)
  - Diplopia [Unknown]
  - Condition aggravated [Unknown]
  - Overdose [Unknown]
  - Drug dependence [Unknown]
  - Pruritus [Recovered/Resolved]
  - Iron deficiency [Unknown]
  - Somnolence [Unknown]
  - Drug ineffective [Unknown]
  - Product substitution issue [Unknown]
